FAERS Safety Report 7212717-4 (Version None)
Quarter: 2011Q1

REPORT INFORMATION
  Report Type: 
  Country: None (occurrence: None)
  Receive Date: 20110106
  Receipt Date: 20110104
  Transmission Date: 20110831
  Serious: Yes (Other)
  Sender: FDA-Public Use
  Company Number: US-JNJFOC-20101205503

PATIENT
  Age: 7 Year
  Sex: Male

DRUGS (3)
  1. RITALIN [Concomitant]
     Indication: ATTENTION DEFICIT/HYPERACTIVITY DISORDER
     Dosage: AFTERNOON
     Route: 048
  2. CONCERTA [Suspect]
     Indication: ATTENTION DEFICIT/HYPERACTIVITY DISORDER
     Route: 048
  3. CONCERTA [Suspect]
     Route: 048

REACTIONS (5)
  - HALLUCINATION [None]
  - DRUG DOSE OMISSION [None]
  - PSYCHOMOTOR HYPERACTIVITY [None]
  - FEELING ABNORMAL [None]
  - COGNITIVE DISORDER [None]
